FAERS Safety Report 8514625-5 (Version None)
Quarter: 2012Q3

REPORT INFORMATION
  Report Type: 
  Country: None (occurrence: None)
  Receive Date: 20120717
  Receipt Date: 20120705
  Transmission Date: 20120928
  Serious: Yes (Other)
  Sender: FDA-Public Use
  Company Number: FR-TEVA-347224ISR

PATIENT
  Sex: Female
  Weight: 53 kg

DRUGS (3)
  1. COPAXONE [Suspect]
     Dates: start: 20110101, end: 20110901
  2. COPAXONE [Suspect]
     Dates: start: 20100601, end: 20100101
  3. COPAXONE [Suspect]
     Dates: start: 20120613

REACTIONS (13)
  - MULTIPLE SCLEROSIS RELAPSE [None]
  - INJECTION SITE ATROPHY [None]
  - WEIGHT DECREASED [None]
  - MUSCULAR WEAKNESS [None]
  - INJECTION SITE NODULE [None]
  - INJECTION SITE PAIN [None]
  - VISION BLURRED [None]
  - INJECTION SITE VESICLES [None]
  - ANOREXIA NERVOSA [None]
  - DECREASED APPETITE [None]
  - NAUSEA [None]
  - EYE IRRITATION [None]
  - INJECTION SITE ERYTHEMA [None]
